FAERS Safety Report 7141729-4 (Version None)
Quarter: 2010Q4

REPORT INFORMATION
  Report Type: 
  Country: None (occurrence: None)
  Receive Date: 20101202
  Receipt Date: 20101202
  Transmission Date: 20110411
  Serious: Yes (Other)
  Sender: FDA-Public Use
  Company Number: None

PATIENT
  Sex: Male
  Weight: 68.0396 kg

DRUGS (8)
  1. LIPITOR [Suspect]
     Indication: BLOOD CHOLESTEROL INCREASED
     Dosage: 80 MG 1/DAY ORAL
     Route: 048
     Dates: start: 20100515
  2. DIOVAN HCT [Concomitant]
  3. PLAVIX [Concomitant]
  4. ASPIRIN [Concomitant]
  5. ADODART [Concomitant]
  6. HYDROXYZINE HGI [Concomitant]
  7. PHENYLTONIN SODIUM [Concomitant]
  8. NIASPAN [Concomitant]

REACTIONS (6)
  - DYSSTASIA [None]
  - FALL [None]
  - MUSCULAR WEAKNESS [None]
  - PRURITUS [None]
  - VISUAL ACUITY REDUCED [None]
  - WALKING AID USER [None]
